FAERS Safety Report 6994072-8 (Version None)
Quarter: 2010Q3

REPORT INFORMATION
  Report Type: 
  Country: None (occurrence: None)
  Receive Date: 20100917
  Receipt Date: 20071221
  Transmission Date: 20110219
  Serious: No
  Sender: FDA-Public Use
  Company Number: US-ASTRAZENECA-2007UW10878

PATIENT
  Age: 42 Year
  Sex: Female
  Weight: 83.5 kg

DRUGS (12)
  1. SEROQUEL [Suspect]
     Indication: ANXIETY
     Route: 048
     Dates: start: 20020101, end: 20040101
  2. SEROQUEL [Suspect]
     Indication: DEPRESSION
     Route: 048
     Dates: start: 20020101, end: 20040101
  3. SEROQUEL [Suspect]
     Indication: PARANOIA
     Route: 048
     Dates: start: 20020101, end: 20040101
  4. SEROQUEL [Suspect]
     Dosage: FACT SHEET STATED STOPPING SEROQUEL DUE TO DIABETES IN 2004.  DOSE: 100 MG.
     Route: 048
     Dates: start: 20030101
  5. SEROQUEL [Suspect]
     Dosage: FACT SHEET STATED STOPPING SEROQUEL DUE TO DIABETES IN 2004.  DOSE: 100 MG.
     Route: 048
     Dates: start: 20030101
  6. SEROQUEL [Suspect]
     Dosage: FACT SHEET STATED STOPPING SEROQUEL DUE TO DIABETES IN 2004.  DOSE: 100 MG.
     Route: 048
     Dates: start: 20030101
  7. SEROQUEL [Suspect]
     Route: 048
     Dates: start: 20041116
  8. SEROQUEL [Suspect]
     Route: 048
     Dates: start: 20041116
  9. SEROQUEL [Suspect]
     Route: 048
     Dates: start: 20041116
  10. CLOZARIL [Concomitant]
  11. EFFEXOR XR [Concomitant]
     Dosage: DOSE- 37.5 MG TO 150 MG DAILY
     Route: 048
     Dates: start: 20040714
  12. KLONOPIN [Concomitant]
     Indication: SLEEP DISORDER
     Dosage: DOSE- 1 MG TO 2 MG DAILY
     Route: 048
     Dates: start: 20040714

REACTIONS (4)
  - DIABETES MELLITUS [None]
  - OBESITY [None]
  - OVERWEIGHT [None]
  - TYPE 2 DIABETES MELLITUS [None]
